FAERS Safety Report 23201864 (Version 2)
Quarter: 2024Q1

REPORT INFORMATION
  Report Type: Other
  Country: US (occurrence: None)
  Receive Date: 20231120
  Receipt Date: 20240116
  Transmission Date: 20240410
  Serious: Yes (Hospitalization, Other)
  Sender: FDA-Public Use
  Company Number: US-ROCHE-3460290

PATIENT
  Age: 46 Year
  Sex: Male
  Weight: 64.468 kg

DRUGS (1)
  1. OCREVUS [Suspect]
     Active Substance: OCRELIZUMAB
     Indication: Relapsing multiple sclerosis
     Dosage: THEN 600 MG EVERY SIX MONTHS
     Route: 042
     Dates: start: 20191126

REACTIONS (5)
  - COVID-19 [Recovered/Resolved]
  - Pulmonary oedema [Unknown]
  - Fall [Unknown]
  - Chest pain [Unknown]
  - Gastrointestinal infection [Unknown]

NARRATIVE: CASE EVENT DATE: 20230901
